FAERS Safety Report 6534924-6 (Version None)
Quarter: 2010Q1

REPORT INFORMATION
  Report Type: 
  Country: None (occurrence: None)
  Receive Date: 20100112
  Receipt Date: 20100104
  Transmission Date: 20100710
  Serious: Yes (Other)
  Sender: FDA-Public Use
  Company Number: US-AMGEN-QUU383637

PATIENT
  Sex: Female
  Weight: 47.7 kg

DRUGS (4)
  1. NEULASTA [Suspect]
     Indication: CHEMOTHERAPY
     Route: 065
     Dates: start: 20090924
  2. ADRIAMYCIN PFS [Concomitant]
  3. CYTOXAN [Concomitant]
  4. EFFEXOR [Concomitant]

REACTIONS (6)
  - ABDOMINAL DISCOMFORT [None]
  - DYSPHONIA [None]
  - PAIN [None]
  - PALPITATIONS [None]
  - RETCHING [None]
  - THROAT TIGHTNESS [None]
